FAERS Safety Report 4704425-6 (Version None)
Quarter: 2005Q2

REPORT INFORMATION
  Report Type: 
  Country: None (occurrence: None)
  Receive Date: 20050630
  Receipt Date: 20050630
  Transmission Date: 20051028
  Serious: Yes (Other)
  Sender: FDA-Public Use
  Company Number: None

PATIENT
  Age: 63 Year
  Sex: Male
  Weight: 85.7298 kg

DRUGS (2)
  1. DURAGESIC-100 [Suspect]
     Indication: LUMBAR SPINAL STENOSIS
     Dosage: TRANSDERMAL
     Route: 062
     Dates: start: 20050519, end: 20050628
  2. DURAGESIC-100 [Suspect]
     Indication: NEUROPATHY PERIPHERAL
     Dosage: TRANSDERMAL
     Route: 062
     Dates: start: 20050519, end: 20050628

REACTIONS (1)
  - PAIN [None]
